FAERS Safety Report 23916697 (Version 1)
Quarter: 2024Q2

REPORT INFORMATION
  Report Type: Report from Study
  Country: US (occurrence: None)
  Receive Date: 20240529
  Receipt Date: 20240529
  Transmission Date: 20240716
  Serious: Yes (Death)
  Sender: FDA-Public Use
  Company Number: 2024A123471

PATIENT
  Age: 64 Year
  Sex: Female

DRUGS (5)
  1. DURVALUMAB [Suspect]
     Active Substance: DURVALUMAB
     Indication: Cholangiocarcinoma
     Route: 042
  2. DURVALUMAB [Suspect]
     Active Substance: DURVALUMAB
     Indication: Metastases to lymph nodes
     Route: 042
  3. DURVALUMAB [Suspect]
     Active Substance: DURVALUMAB
     Indication: Metastases to lung
     Route: 042
  4. GEMCITABINE [Concomitant]
     Active Substance: GEMCITABINE
  5. CISPLATIN [Concomitant]
     Active Substance: CISPLATIN

REACTIONS (2)
  - Middle cerebral artery stroke [Fatal]
  - Upper gastrointestinal haemorrhage [Fatal]
